FAERS Safety Report 5324826-5 (Version None)
Quarter: 2007Q2

REPORT INFORMATION
  Report Type: 
  Country: None (occurrence: None)
  Receive Date: 20070515
  Receipt Date: 20070508
  Transmission Date: 20071010
  Serious: Yes (Hospitalization, Other)
  Sender: FDA-Public Use
  Company Number: PHEH2007US07101

PATIENT
  Sex: Female

DRUGS (2)
  1. ZELNORM [Suspect]
     Indication: IRRITABLE BOWEL SYNDROME
     Dosage: 6 MG, PRN
     Dates: start: 20020101, end: 20060101
  2. ZELNORM [Suspect]
     Dosage: 2 MG, PRN
     Dates: start: 20060101, end: 20070401

REACTIONS (11)
  - ABDOMINAL PAIN UPPER [None]
  - AMNESIA [None]
  - ANAEMIA [None]
  - DYSPNOEA [None]
  - FATIGUE [None]
  - HEADACHE [None]
  - HYPERTENSION [None]
  - OSTEOPENIA [None]
  - PRESYNCOPE [None]
  - RECTAL HAEMORRHAGE [None]
  - VITAMIN D DEFICIENCY [None]
